FAERS Safety Report 7220046-8 (Version None)
Quarter: 2011Q1

REPORT INFORMATION
  Report Type: 
  Country: None (occurrence: None)
  Receive Date: 20110111
  Receipt Date: 20110104
  Transmission Date: 20110831
  Serious: Yes (Death)
  Sender: FDA-Public Use
  Company Number: A0884797A

PATIENT
  Age: 15 Year
  Sex: Male

DRUGS (2)
  1. NO CONCURRENT MEDICATION [Concomitant]
  2. LAMICTAL [Suspect]
     Dosage: 200MG TWICE PER DAY
     Route: 048
     Dates: start: 20071001, end: 20080207

REACTIONS (5)
  - COMPLETED SUICIDE [None]
  - CONVERSION DISORDER [None]
  - ROAD TRAFFIC ACCIDENT [None]
  - ILL-DEFINED DISORDER [None]
  - DEPRESSION [None]
